FAERS Safety Report 9440703 (Version 2)
Quarter: 2013Q4

REPORT INFORMATION
  Report Type: Spontaneous
  Country: US (occurrence: US)
  Receive Date: 20130805
  Receipt Date: 20131009
  Transmission Date: 20140711
  Serious: Yes (Other)
  Sender: FDA-Public Use
  Company Number: US-JNJFOC-20130800068

PATIENT
  Age: 72 Year
  Sex: Female
  Weight: 78.47 kg

DRUGS (9)
  1. REMICADE [Suspect]
     Indication: RHEUMATOID ARTHRITIS
     Route: 042
     Dates: start: 201301
  2. REMICADE [Suspect]
     Indication: RHEUMATOID ARTHRITIS
     Route: 042
     Dates: start: 201211
  3. REMICADE [Suspect]
     Indication: RHEUMATOID ARTHRITIS
     Route: 042
     Dates: start: 201305, end: 201305
  4. MINOXIDIL [Concomitant]
     Indication: HYPERTENSION
     Route: 065
     Dates: start: 20130129
  5. CITALOPRAM [Concomitant]
     Route: 065
  6. TRAZODONE [Concomitant]
     Route: 065
  7. TRAMADOL [Concomitant]
     Route: 065
  8. LOPRESSOR [Concomitant]
     Route: 065
  9. PLAVIX [Concomitant]
     Route: 065

REACTIONS (1)
  - Lichenoid keratosis [Recovered/Resolved with Sequelae]
